FAERS Safety Report 14853622 (Version 4)
Quarter: 2018Q3

REPORT INFORMATION
  Report Type: Spontaneous
  Country: DE (occurrence: DE)
  Receive Date: 20180507
  Receipt Date: 20180719
  Transmission Date: 20181010
  Serious: Yes (Death, Other)
  Sender: FDA-Public Use
  Company Number: DE-PFIZER INC-2018184024

PATIENT
  Age: 92 Year
  Sex: Female

DRUGS (6)
  1. MIMPARA [Concomitant]
     Active Substance: CINACALCET HYDROCHLORIDE
     Dosage: UNK
     Route: 065
  2. RAMIPRIL. [Concomitant]
     Active Substance: RAMIPRIL
     Dosage: UNK
     Route: 065
  3. LERCANIDIPINE [Concomitant]
     Active Substance: LERCANIDIPINE
     Dosage: UNK
     Route: 065
  4. CEFURAX [Suspect]
     Active Substance: CEFUROXIME AXETIL
     Indication: VOMITING
     Dosage: UNK
     Route: 048
  5. MORPHINE SULFATE. [Suspect]
     Active Substance: MORPHINE SULFATE
     Dosage: UNK
     Route: 065
  6. NOVALGIN (METAMIZOLE SODIUM) [Concomitant]
     Active Substance: METAMIZOLE SODIUM
     Dosage: UNK

REACTIONS (9)
  - Overdose [Fatal]
  - Panic reaction [Unknown]
  - General physical health deterioration [Unknown]
  - Thirst [Unknown]
  - Multiple organ dysfunction syndrome [Fatal]
  - Asthenia [Unknown]
  - Respiratory distress [Unknown]
  - Pneumonia aspiration [Unknown]
  - Breath sounds [Unknown]
